FAERS Safety Report 9752172 (Version 1)
Quarter: 2013Q4

REPORT INFORMATION
  Report Type: Spontaneous
  Country: GB (occurrence: None)
  Receive Date: 20131211
  Receipt Date: 20131211
  Transmission Date: 20140711
  Serious: Yes (Hospitalization)
  Sender: FDA-Public Use
  Company Number: IMP_06904_2013

PATIENT
  Age: 75 Year
  Sex: Female

DRUGS (1)
  1. OMEPRAZOLE ( OMEPRAZOLE) [Suspect]
     Indication: PRODUCT USED FOR UNKNOWN INDICATION
     Dosage: DF

REACTIONS (3)
  - Vomiting [None]
  - Lethargy [None]
  - Hypomagnesaemia [None]
